FAERS Safety Report 7751273-9 (Version None)
Quarter: 2011Q3

REPORT INFORMATION
  Report Type: 
  Country: None (occurrence: None)
  Receive Date: 20110914
  Receipt Date: 20110913
  Transmission Date: 20111222
  Serious: Yes (Death, Hospitalization, Other)
  Sender: FDA-Public Use
  Company Number: JP-ABBOTT-11P-087-0849949-00

PATIENT
  Sex: Male
  Weight: 64.6 kg

DRUGS (6)
  1. SEVOFLURANE [Suspect]
     Indication: SURGERY
     Route: 055
     Dates: start: 20081222, end: 20081222
  2. FENTANYL [Concomitant]
     Indication: PRODUCT USED FOR UNKNOWN INDICATION
     Dates: start: 20081222, end: 20081222
  3. MORPHINE HYDROCHLORIDE HYDRATE [Concomitant]
     Indication: PRODUCT USED FOR UNKNOWN INDICATION
     Dates: start: 20081222, end: 20081222
  4. ROCURONIUM BROMIDE [Concomitant]
     Indication: PRODUCT USED FOR UNKNOWN INDICATION
     Dates: start: 20081222, end: 20081222
  5. SEVOFLURANE [Suspect]
     Dates: start: 20081222, end: 20081222
  6. MIDAZOLAM HCL [Concomitant]
     Indication: PRODUCT USED FOR UNKNOWN INDICATION

REACTIONS (3)
  - CARDIAC FAILURE CONGESTIVE [None]
  - CARDIAC ARREST [None]
  - DIALYSIS [None]
